FAERS Safety Report 10071887 (Version 1)
Quarter: 2014Q2

REPORT INFORMATION
  Report Type: Spontaneous
  Country: NL (occurrence: NL)
  Receive Date: 20140411
  Receipt Date: 20140411
  Transmission Date: 20141212
  Serious: Yes (Life-Threatening, Other)
  Sender: FDA-Public Use
  Company Number: NL-JNJFOC-20140400714

PATIENT
  Sex: Female

DRUGS (4)
  1. HALDOL [Suspect]
     Indication: APHASIA
     Dosage: 10 MG TABLET
     Route: 065
     Dates: start: 2004
  2. ZUCLOPENTHIXOL ACETATE [Suspect]
     Indication: PRODUCT USED FOR UNKNOWN INDICATION
     Dosage: 50 MG/ML AMPUL 1ML
     Route: 030
     Dates: start: 2004
  3. DIAZEPAM [Suspect]
     Indication: PRODUCT USED FOR UNKNOWN INDICATION
     Route: 065
     Dates: start: 20130810
  4. AKINETON [Suspect]
     Indication: PRODUCT USED FOR UNKNOWN INDICATION
     Route: 065

REACTIONS (3)
  - Cerebral haemorrhage [Not Recovered/Not Resolved]
  - Polyuria [Not Recovered/Not Resolved]
  - Off label use [Unknown]
